FAERS Safety Report 10896904 (Version 1)
Quarter: 2015Q1

REPORT INFORMATION
  Report Type: Report from Study
  Country: US (occurrence: US)
  Receive Date: 20150309
  Receipt Date: 20150309
  Transmission Date: 20150721
  Serious: No
  Sender: FDA-Public Use
  Company Number: US-ROCHE-GNE244795

PATIENT
  Age: 77 Year
  Sex: Female

DRUGS (17)
  1. LEXAPRO [Concomitant]
     Active Substance: ESCITALOPRAM OXALATE
  2. ZOCOR [Concomitant]
     Active Substance: SIMVASTATIN
  3. ALLEGRA-D [Concomitant]
     Active Substance: FEXOFENADINE\PSEUDOEPHEDRINE
  4. NASACORT [Concomitant]
     Active Substance: TRIAMCINOLONE ACETONIDE
  5. LUCENTIS [Suspect]
     Active Substance: RANIBIZUMAB
     Indication: BLINDNESS UNILATERAL
  6. AVASTIN [Suspect]
     Active Substance: BEVACIZUMAB
     Indication: PRODUCT USED FOR UNKNOWN INDICATION
     Route: 065
  7. MICARDIS [Concomitant]
     Active Substance: TELMISARTAN
  8. LUCENTIS [Suspect]
     Active Substance: RANIBIZUMAB
     Indication: AGE-RELATED MACULAR DEGENERATION
     Route: 065
     Dates: start: 2006
  9. FOLIC ACID. [Concomitant]
     Active Substance: FOLIC ACID
  10. AZOR (UNITED STATES) [Concomitant]
  11. LUCENTIS [Suspect]
     Active Substance: RANIBIZUMAB
     Indication: MACULAR DEGENERATION
  12. SINGULAIR [Concomitant]
     Active Substance: MONTELUKAST SODIUM
  13. LEVOXYL [Concomitant]
     Active Substance: LEVOTHYROXINE SODIUM
  14. PRILOSEC [Concomitant]
     Active Substance: OMEPRAZOLE MAGNESIUM
  15. PREMARIN [Concomitant]
     Active Substance: ESTROGENS, CONJUGATED
  16. VERAPAMIL [Concomitant]
     Active Substance: VERAPAMIL HYDROCHLORIDE
  17. EYE CAPS (UNK INGREDIENTS) [Concomitant]

REACTIONS (8)
  - Hearing impaired [Unknown]
  - Road traffic accident [Unknown]
  - Visual impairment [Not Recovered/Not Resolved]
  - Haemorrhage [Not Recovered/Not Resolved]
  - Vitreous floaters [Unknown]
  - Cataract [Recovered/Resolved]
  - Visual acuity reduced [Not Recovered/Not Resolved]
  - Eye disorder [Not Recovered/Not Resolved]

NARRATIVE: CASE EVENT DATE: 200611
